FAERS Safety Report 12998691 (Version 1)
Quarter: 2016Q4

REPORT INFORMATION
  Report Type: Spontaneous
  Country: US (occurrence: US)
  Receive Date: 20161204
  Receipt Date: 20161204
  Transmission Date: 20170207
  Serious: Yes (Life-Threatening, Hospitalization, Disabling, Other)
  Sender: FDA-Public Use
  Company Number: None

PATIENT
  Age: 29 Year
  Sex: Male
  Weight: 72.9 kg

DRUGS (6)
  1. CIPRO [Suspect]
     Active Substance: CIPROFLOXACIN HYDROCHLORIDE
     Indication: PROCTITIS
     Dosage: ?          QUANTITY:1 TABLET(S);?
     Route: 048
  2. VITAMIN SUPPLEMENTS [Concomitant]
     Active Substance: VITAMINS
  3. VITAMIN D [Concomitant]
     Active Substance: CHOLECALCIFEROL
  4. ZINC [Concomitant]
     Active Substance: ZINC\ZINC CHLORIDE
  5. GENVOYA [Concomitant]
     Active Substance: COBICISTAT\ELVITEGRAVIR\EMTRICITABINE\TENOFOVIR ALAFENAMIDE FUMARATE
  6. VITAMINC C [Concomitant]

REACTIONS (20)
  - Abdominal discomfort [None]
  - Speech disorder [None]
  - Dizziness [None]
  - Tendon pain [None]
  - Myalgia [None]
  - Headache [None]
  - Abdominal pain [None]
  - Paraesthesia [None]
  - Feeling of despair [None]
  - Anxiety [None]
  - Dysstasia [None]
  - Multi-organ disorder [None]
  - Gastrointestinal pain [None]
  - Confusional state [None]
  - Chills [None]
  - Pain in extremity [None]
  - Visual impairment [None]
  - Depression [None]
  - Nightmare [None]
  - Abasia [None]

NARRATIVE: CASE EVENT DATE: 20161125
